FAERS Safety Report 13665223 (Version 1)
Quarter: 2017Q2

REPORT INFORMATION
  Report Type: Spontaneous
  Country: FR (occurrence: FR)
  Receive Date: 20170619
  Receipt Date: 20170619
  Transmission Date: 20170830
  Serious: Yes (Disabling)
  Sender: FDA-Public Use
  Company Number: FR-PFIZER INC-2017261678

PATIENT
  Age: 44 Year
  Sex: Female

DRUGS (5)
  1. SOLU-MEDROL [Suspect]
     Active Substance: METHYLPREDNISOLONE SODIUM SUCCINATE
     Indication: LYMPHANGITIS
     Dosage: 80 MG, DAILY
     Dates: start: 201612
  2. AVASTIN [Suspect]
     Active Substance: BEVACIZUMAB
     Indication: BREAST CANCER METASTATIC
     Dosage: 775 MG, CYCLIC, EVERY 15 DAYS
     Route: 042
     Dates: start: 20170124, end: 20170419
  3. SOLUPRED /00016201/ [Suspect]
     Active Substance: PREDNISOLONE
     Indication: LYMPHANGITIS
     Dosage: 40 MG, DAILY
     Route: 048
     Dates: start: 201612
  4. OXYGEN. [Concomitant]
     Active Substance: OXYGEN
     Indication: LYMPHANGITIS
  5. PACLITAXEL. [Concomitant]
     Active Substance: PACLITAXEL
     Indication: BREAST CANCER METASTATIC
     Dosage: 174 MG, CYCLIC ON D1, 8 AND 15, CONTINUED
     Dates: start: 20170124

REACTIONS (2)
  - Eschar [Not Recovered/Not Resolved]
  - Anal fistula [Not Recovered/Not Resolved]

NARRATIVE: CASE EVENT DATE: 201705
